FAERS Safety Report 8155966-3 (Version None)
Quarter: 2012Q1

REPORT INFORMATION
  Report Type: 
  Country: None (occurrence: None)
  Receive Date: 20120221
  Receipt Date: 20120221
  Transmission Date: 20120608
  Serious: Yes (Other)
  Sender: FDA-Public Use
  Company Number: None

PATIENT
  Age: 24 Year
  Sex: Female
  Weight: 56.8 kg

DRUGS (2)
  1. NORGESTIMATE AND ETHINYL ESTRADIOL [Suspect]
     Dosage: 28 PILLS 1 PER DAY ORAL CONTRACEPTIVE
     Route: 048
     Dates: start: 20050901
  2. TRI-SPRINTEC [Suspect]

REACTIONS (7)
  - WEIGHT FLUCTUATION [None]
  - FEELING OF BODY TEMPERATURE CHANGE [None]
  - MUSCLE SPASMS [None]
  - SLEEP TERROR [None]
  - PRODUCT QUALITY ISSUE [None]
  - OVARIAN CYST [None]
  - MOOD SWINGS [None]
